FAERS Safety Report 12592407 (Version 1)
Quarter: 2016Q3

REPORT INFORMATION
  Report Type: Spontaneous
  Country: US (occurrence: None)
  Receive Date: 20160725
  Receipt Date: 20160725
  Transmission Date: 20161109
  Serious: No
  Sender: FDA-Public Use
  Company Number: None

PATIENT
  Age: 73 Year
  Sex: Male

DRUGS (1)
  1. LETAIRIS [Suspect]
     Active Substance: AMBRISENTAN
     Route: 048
     Dates: start: 20160524

REACTIONS (3)
  - Pulmonary hypertension [None]
  - Anaemia [None]
  - Oedema peripheral [None]

NARRATIVE: CASE EVENT DATE: 20160705
